FAERS Safety Report 19763854 (Version 1)
Quarter: 2021Q3

REPORT INFORMATION
  Report Type: Other
  Country: CN (occurrence: CN)
  Receive Date: 20210830
  Receipt Date: 20210830
  Transmission Date: 20211014
  Serious: Yes (Death)
  Sender: FDA-Public Use
  Company Number: CN-ROCHE-2750555

PATIENT
  Age: 70 Year
  Sex: Female
  Weight: 65 kg

DRUGS (1)
  1. AVASTIN [Suspect]
     Active Substance: BEVACIZUMAB
     Indication: NON-SMALL CELL LUNG CANCER
     Route: 041
     Dates: start: 20170713, end: 20210121

REACTIONS (5)
  - Fall [Unknown]
  - Pleural effusion [Fatal]
  - Ligament sprain [Unknown]
  - Dyspnoea [Unknown]
  - Limb injury [Unknown]

NARRATIVE: CASE EVENT DATE: 202101
